FAERS Safety Report 25805992 (Version 1)
Quarter: 2025Q3

REPORT INFORMATION
  Report Type: Spontaneous
  Country: CA (occurrence: CA)
  Receive Date: 20250916
  Receipt Date: 20250916
  Transmission Date: 20251020
  Serious: Yes (Death, Hospitalization, Other)
  Sender: DR REDDYS
  Company Number: CA-RDY-CAN/2025/09/014009

PATIENT
  Sex: Male

DRUGS (7)
  1. AZACITIDINE [Suspect]
     Active Substance: AZACITIDINE
     Indication: Acute myeloid leukaemia
     Route: 065
  2. AZACITIDINE [Suspect]
     Active Substance: AZACITIDINE
     Route: 065
  3. VENETOCLAX [Suspect]
     Active Substance: VENETOCLAX
     Indication: Acute myeloid leukaemia
     Route: 048
  4. VENETOCLAX [Suspect]
     Active Substance: VENETOCLAX
     Route: 048
  5. VENETOCLAX [Suspect]
     Active Substance: VENETOCLAX
     Route: 048
  6. VENETOCLAX [Suspect]
     Active Substance: VENETOCLAX
     Route: 048
  7. VENETOCLAX [Suspect]
     Active Substance: VENETOCLAX
     Route: 048

REACTIONS (1)
  - Colitis [Fatal]
